FAERS Safety Report 20130715 (Version 1)
Quarter: 2021Q4

REPORT INFORMATION
  Report Type: Spontaneous
  Country: IN (occurrence: IN)
  Receive Date: 20211130
  Receipt Date: 20211130
  Transmission Date: 20220303
  Serious: Yes (Other)
  Sender: FDA-Public Use
  Company Number: IN-BAYER-2021A253931

PATIENT
  Age: 74 Year
  Sex: Male

DRUGS (3)
  1. REGORAFENIB [Suspect]
     Active Substance: REGORAFENIB
     Dosage: DAILY DOSE 80 MG FOR 1 WEEK
  2. REGORAFENIB [Suspect]
     Active Substance: REGORAFENIB
     Dosage: DAILY DOSE 120 MG FOR 2 WEEK
  3. HAFOOS [Concomitant]
     Dosage: UNK

REACTIONS (5)
  - Gastrointestinal stromal tumour [None]
  - Inguinal hernia [None]
  - Hepatomegaly [None]
  - Ascites [None]
  - Off label use [None]
